FAERS Safety Report 9411100 (Version 3)
Quarter: 2014Q3

REPORT INFORMATION
  Report Type: Report from Study
  Country: FR (occurrence: FR)
  Receive Date: 20130721
  Receipt Date: 20140723
  Transmission Date: 20150326
  Serious: Yes (Other)
  Sender: FDA-Public Use
  Company Number: PHHY2013FR075121

PATIENT
  Age: 17 Year
  Sex: Female

DRUGS (1)
  1. TOBRAMYCIN INHALATION POWDER [Suspect]
     Active Substance: TOBRAMYCIN
     Indication: PSEUDOMONAS INFECTION
     Dosage: UNK
     Dates: start: 20121003

REACTIONS (3)
  - Bronchospasm [Unknown]
  - Asthmatic crisis [Recovered/Resolved]
  - Cough [Unknown]

NARRATIVE: CASE EVENT DATE: 20130105
